FAERS Safety Report 16655603 (Version 1)
Quarter: 2019Q3

REPORT INFORMATION
  Report Type: Spontaneous
  Country: NL (occurrence: NL)
  Receive Date: 20190801
  Receipt Date: 20190801
  Transmission Date: 20191004
  Serious: Yes (Other)
  Sender: FDA-Public Use
  Company Number: NL-TEVA-2019-NL-1085545

PATIENT
  Age: 67 Year
  Sex: Male
  Weight: 80 kg

DRUGS (5)
  1. LISINOPRIL 20 [Concomitant]
  2. ATOR 20 [Concomitant]
  3. ASCAL 80 [Concomitant]
  4. OMEPRAZOL 20 [Concomitant]
     Active Substance: OMEPRAZOLE
  5. AMLODIPINE [Suspect]
     Active Substance: AMLODIPINE BESYLATE
     Indication: HYPERTENSION
     Dosage: 1 X PER DAY 1 TABLET ,5 MILLIGRAM/DAYS
     Dates: start: 20190608, end: 20190618

REACTIONS (3)
  - Chest pain [Recovered/Resolved]
  - Dyspnoea exertional [Recovered/Resolved]
  - Dyspnoea at rest [Recovered/Resolved]

NARRATIVE: CASE EVENT DATE: 20190614
